FAERS Safety Report 17848800 (Version 3)
Quarter: 2020Q2

REPORT INFORMATION
  Report Type: Spontaneous
  Country: IT (occurrence: IT)
  Receive Date: 20200602
  Receipt Date: 20200630
  Transmission Date: 20200714
  Serious: Yes (Other)
  Sender: FDA-Public Use
  Company Number: NVSC2020IT150704

PATIENT
  Age: 46 Year
  Sex: Female

DRUGS (3)
  1. ZOLEDRONIC ACID [Suspect]
     Active Substance: ZOLEDRONIC ACID
     Indication: METASTASES TO BONE
     Dosage: 1 DF
     Route: 042
     Dates: start: 20150901, end: 20150901
  2. BEVACIZUMAB. [Interacting]
     Active Substance: BEVACIZUMAB
     Indication: BREAST CANCER
  3. BEVACIZUMAB. [Interacting]
     Active Substance: BEVACIZUMAB
     Indication: BREAST NEOPLASM
     Dosage: 1 DF, CYCLIC
     Route: 042
     Dates: start: 20160401, end: 20190801

REACTIONS (2)
  - Osteonecrosis of jaw [Recovered/Resolved with Sequelae]
  - Drug interaction [Recovered/Resolved with Sequelae]

NARRATIVE: CASE EVENT DATE: 20190822
